FAERS Safety Report 8442432-0 (Version None)
Quarter: 2012Q2

REPORT INFORMATION
  Report Type: 
  Country: None (occurrence: None)
  Receive Date: 20120615
  Receipt Date: 20120119
  Transmission Date: 20120825
  Serious: No
  Sender: FDA-Public Use
  Company Number: US-NOVEN-12US003961

PATIENT
  Sex: Male
  Weight: 43.537 kg

DRUGS (2)
  1. DAYTRANA [Suspect]
     Indication: ATTENTION DEFICIT/HYPERACTIVITY DISORDER
     Dosage: 10 MG, QD
     Route: 062
     Dates: start: 20090901
  2. DAYTRANA [Suspect]
     Dosage: 20 MG, QD
     Route: 062

REACTIONS (5)
  - AGGRESSION [None]
  - EYE DISORDER [None]
  - WEIGHT DECREASED [None]
  - PALPITATIONS [None]
  - ANXIETY [None]
